FAERS Safety Report 5178888-9 (Version None)
Quarter: 2006Q4

REPORT INFORMATION
  Report Type: 
  Country: None (occurrence: None)
  Receive Date: 20061208
  Receipt Date: 20061121
  Transmission Date: 20070319
  Serious: Yes (Death)
  Sender: FDA-Public Use
  Company Number: US-2006-036348

PATIENT
  Age: 60 Year
  Sex: Male

DRUGS (1)
  1. BETASERON(INTERFERONN BETA-1B) INJECTION, 250UG [Suspect]
     Indication: MULTIPLE SCLEROSIS
     Dosage: UNK, UNK, SUBCUTANEOUS
     Route: 058
     Dates: start: 19940404, end: 20061119

REACTIONS (1)
  - MYOCARDIAL INFARCTION [None]
